FAERS Safety Report 17544333 (Version 2)
Quarter: 2020Q2

REPORT INFORMATION
  Report Type: Report from Study
  Country: US (occurrence: US)
  Receive Date: 20200316
  Receipt Date: 20200402
  Transmission Date: 20200713
  Serious: Yes (Other)
  Sender: FDA-Public Use
  Company Number: US-JNJFOC-20200308252

PATIENT
  Age: 64 Year
  Sex: Female
  Weight: 77.18 kg

DRUGS (4)
  1. TRINTELLIX [Concomitant]
     Active Substance: VORTIOXETINE HYDROBROMIDE
     Dates: start: 20200213
  2. SPRAVATO [Suspect]
     Active Substance: ESKETAMINE
     Indication: DEPRESSION
     Dates: start: 20190701, end: 201912
  3. SPRAVATO [Suspect]
     Active Substance: ESKETAMINE
     Dates: start: 202001, end: 20200203
  4. TRINTELLIX [Concomitant]
     Active Substance: VORTIOXETINE HYDROBROMIDE

REACTIONS (3)
  - Product dose omission [Unknown]
  - Myocardial infarction [Unknown]
  - Irritability [Unknown]

NARRATIVE: CASE EVENT DATE: 202001
